FAERS Safety Report 5007225-5 (Version None)
Quarter: 2006Q1

REPORT INFORMATION
  Report Type: 
  Country: None (occurrence: None)
  Receive Date: 20060320
  Receipt Date: 20050314
  Transmission Date: 20060701
  Serious: Yes (Life-Threatening, Hospitalization)
  Sender: FDA-Public Use
  Company Number: 2005-03-1307

PATIENT
  Age: 48 Year
  Sex: Male
  Weight: 83.0083 kg

DRUGS (7)
  1. PEG-INTRON [Suspect]
     Indication: HEPATITIS C
     Dosage: 150-120MCG/WK SUBCUTANEOUS
     Route: 058
     Dates: start: 20041031, end: 20050209
  2. PEG-INTRON [Suspect]
     Indication: HEPATITIS C
     Dosage: 150-120MCG/WK SUBCUTANEOUS
     Route: 058
     Dates: start: 20050210, end: 20050309
  3. REBETOL [Suspect]
     Indication: HEPATITIS C
     Dosage: 1200-1000MG/D ORAL
     Route: 048
     Dates: start: 20041031, end: 20050209
  4. REBETOL [Suspect]
     Indication: HEPATITIS C
     Dosage: 1200-1000MG/D ORAL
     Route: 048
     Dates: start: 20050210, end: 20050309
  5. LEXAPRO [Concomitant]
  6. TRAZODONE HCL [Concomitant]
  7. ZOLOFT [Concomitant]

REACTIONS (2)
  - FATIGUE [None]
  - IDIOPATHIC THROMBOCYTOPENIC PURPURA [None]
